FAERS Safety Report 7296930-6 (Version None)
Quarter: 2011Q1

REPORT INFORMATION
  Report Type: 
  Country: None (occurrence: None)
  Receive Date: 20110216
  Receipt Date: 20110209
  Transmission Date: 20110831
  Serious: Yes (Life-Threatening, Hospitalization, Disabling)
  Sender: FDA-Public Use
  Company Number: DE-JNJFOC-20100405592

PATIENT
  Age: 41 Year
  Sex: Male
  Weight: 90 kg

DRUGS (7)
  1. CLAVERSAL [Concomitant]
     Indication: COLITIS ULCERATIVE
  2. REMICADE [Suspect]
     Indication: COLITIS ULCERATIVE
     Route: 042
     Dates: start: 20090310, end: 20100203
  3. REMICADE [Suspect]
     Route: 042
     Dates: start: 20090310, end: 20100203
  4. REMICADE [Suspect]
     Route: 042
     Dates: start: 20090310, end: 20100203
  5. REMICADE [Suspect]
     Route: 042
     Dates: start: 20090310, end: 20100203
  6. REMICADE [Suspect]
     Route: 042
     Dates: start: 20090310, end: 20100203
  7. REMICADE [Suspect]
     Route: 042
     Dates: start: 20090310, end: 20100203

REACTIONS (5)
  - COLITIS ULCERATIVE [None]
  - PULMONARY OEDEMA [None]
  - DEPRESSION [None]
  - STAPHYLOCOCCAL INFECTION [None]
  - GUILLAIN-BARRE SYNDROME [None]
